FAERS Safety Report 7064661-3 (Version None)
Quarter: 2010Q4

REPORT INFORMATION
  Report Type: 
  Country: None (occurrence: None)
  Receive Date: 20101025
  Receipt Date: 20101025
  Transmission Date: 20110411
  Serious: Yes (Life-Threatening)
  Sender: FDA-Public Use
  Company Number: None

PATIENT
  Age: 46 Year
  Sex: Male
  Weight: 81.1939 kg

DRUGS (8)
  1. COPAXONE [Suspect]
     Indication: MULTIPLE SCLEROSIS
     Dosage: 20 MG DAILY SC
     Route: 058
     Dates: start: 20100508
  2. GABAPENTIN [Concomitant]
  3. BACLOFEN [Concomitant]
  4. NUVIGIL [Concomitant]
  5. BETHANECHOL [Concomitant]
  6. TAMSULOSIN [Concomitant]
  7. AZOR [Concomitant]
  8. DOCUSATE SODIUM [Concomitant]

REACTIONS (8)
  - BACK PAIN [None]
  - CHILLS [None]
  - DEFAECATION URGENCY [None]
  - DYSPEPSIA [None]
  - DYSPNOEA [None]
  - DYSSTASIA [None]
  - NAUSEA [None]
  - THROAT IRRITATION [None]
